FAERS Safety Report 7480027-6 (Version None)
Quarter: 2011Q2

REPORT INFORMATION
  Report Type: 
  Country: None (occurrence: None)
  Receive Date: 20110516
  Receipt Date: 20110505
  Transmission Date: 20111010
  Serious: No
  Sender: FDA-Public Use
  Company Number: US-BIOGENIDEC-2010BI029817

PATIENT
  Sex: Female

DRUGS (2)
  1. BETASERON [Concomitant]
     Indication: MULTIPLE SCLEROSIS
  2. TYSABRI [Suspect]
     Indication: MULTIPLE SCLEROSIS
     Route: 042
     Dates: start: 20100114

REACTIONS (11)
  - ASTHENIA [None]
  - ARTHRITIS [None]
  - DRUG EFFECT DECREASED [None]
  - FEAR [None]
  - GAIT DISTURBANCE [None]
  - DRUG INEFFECTIVE [None]
  - LOWER EXTREMITY MASS [None]
  - MENISCUS LESION [None]
  - ARTICULAR CALCIFICATION [None]
  - ARTHRALGIA [None]
  - ARTHROPATHY [None]
